FAERS Safety Report 7692970-3 (Version None)
Quarter: 2011Q3

REPORT INFORMATION
  Report Type: 
  Country: None (occurrence: None)
  Receive Date: 20110816
  Receipt Date: 20110801
  Transmission Date: 20111222
  Serious: No
  Sender: FDA-Public Use
  Company Number: PHHY2011GB64430

PATIENT
  Age: 65 Year
  Sex: Male

DRUGS (4)
  1. ZANAFLEX [Suspect]
     Indication: MUSCLE SPASTICITY
     Dosage: 8 MG, BID
     Route: 048
     Dates: start: 20050321
  2. AMINOPYRIDIN E(FAMPRIDINE) [Suspect]
     Dosage: 1 DF, BID
     Dates: start: 20110623
  3. COPAXONE [Concomitant]
  4. ACETAMINOPHEN [Concomitant]

REACTIONS (5)
  - QUALITY OF LIFE DECREASED [None]
  - DRUG INTERACTION [None]
  - MUSCLE SPASTICITY [None]
  - DRUG INEFFECTIVE [None]
  - PRODUCT QUALITY ISSUE [None]
